FAERS Safety Report 6337697-5 (Version None)
Quarter: 2009Q3

REPORT INFORMATION
  Report Type: 
  Country: None (occurrence: None)
  Receive Date: 20090902
  Receipt Date: 20090824
  Transmission Date: 20100115
  Serious: Yes (Hospitalization)
  Sender: FDA-Public Use
  Company Number: DE-BRISTOL-MYERS SQUIBB COMPANY-14595243

PATIENT
  Sex: Male

DRUGS (1)
  1. ERBITUX [Suspect]
     Indication: TONSIL CANCER
     Dosage: THERAPY DURATION 3 TIMES
     Route: 042

REACTIONS (4)
  - AGITATION [None]
  - ATAXIA [None]
  - EPILEPSY [None]
  - MENTAL IMPAIRMENT [None]
